FAERS Safety Report 20694238 (Version 15)
Quarter: 2022Q4

REPORT INFORMATION
  Report Type: Other
  Country: CA (occurrence: None)
  Receive Date: 20220411
  Receipt Date: 20221115
  Transmission Date: 20230112
  Serious: Yes (Hospitalization)
  Sender: FDA-Public Use
  Company Number: CA-ROCHE-2668934

PATIENT
  Age: 65 Year
  Sex: Female

DRUGS (3)
  1. OCREVUS [Suspect]
     Active Substance: OCRELIZUMAB
     Indication: Relapsing-remitting multiple sclerosis
     Dosage: THEN 600 MG EVERY 6 MONTH
     Route: 042
     Dates: start: 20190808
  2. OCREVUS [Suspect]
     Active Substance: OCRELIZUMAB
     Route: 042
  3. CANDESARTAN [Concomitant]
     Active Substance: CANDESARTAN

REACTIONS (7)
  - Cystitis [Unknown]
  - Sepsis [Unknown]
  - Pain in extremity [Recovering/Resolving]
  - Infection [Unknown]
  - Limb discomfort [Unknown]
  - Musculoskeletal stiffness [Unknown]
  - Urinary tract infection [Not Recovered/Not Resolved]

NARRATIVE: CASE EVENT DATE: 20210102
